FAERS Safety Report 4417073-2 (Version None)
Quarter: 2004Q2

REPORT INFORMATION
  Report Type: 
  Country: None (occurrence: None)
  Receive Date: 20040629
  Receipt Date: 20031117
  Transmission Date: 20050107
  Serious: No
  Sender: FDA-Public Use
  Company Number: US058603

PATIENT
  Age: 89 Year
  Sex: Female
  Weight: 52.7 kg

DRUGS (7)
  1. ARANESP [Suspect]
     Indication: MYELODYSPLASTIC SYNDROME
     Dosage: 200 MCG, EVERY 2 WEEKS, SC
     Route: 058
     Dates: start: 20021206
  2. ASPIRIN [Concomitant]
  3. LOSARTAN POTASSIUM [Concomitant]
  4. MULTIVIT [Concomitant]
  5. ACETAMINOPHEN [Concomitant]
  6. PSYLLIUM HYDROPHILIC MUCILLOID [Concomitant]
  7. PYRIDOXINE HYDROCHLORIDE [Concomitant]

REACTIONS (1)
  - PLATELET COUNT INCREASED [None]
